FAERS Safety Report 15541433 (Version 2)
Quarter: 2018Q4

REPORT INFORMATION
  Report Type: Spontaneous
  Country: BE (occurrence: BE)
  Receive Date: 20181023
  Receipt Date: 20181026
  Transmission Date: 20190205
  Serious: Yes (Death, Other)
  Sender: FDA-Public Use
  Company Number: BE-ASTRAZENECA-2018SF36913

PATIENT

DRUGS (2)
  1. BRILIQUE [Suspect]
     Active Substance: TICAGRELOR
     Indication: CORONARY ARTERIAL STENT INSERTION
     Dosage: 90.0MG UNKNOWN
     Route: 048
  2. ASA [Concomitant]
     Active Substance: ASPIRIN

REACTIONS (3)
  - Haemorrhage [Fatal]
  - Cardiac ventricular disorder [Unknown]
  - Product prescribing error [Fatal]
